FAERS Safety Report 8580170-4 (Version None)
Quarter: 2012Q3

REPORT INFORMATION
  Report Type: 
  Country: None (occurrence: None)
  Receive Date: 20120808
  Receipt Date: 20120802
  Transmission Date: 20120928
  Serious: Yes (Other)
  Sender: FDA-Public Use
  Company Number: GB-TEVA-108488ISR

PATIENT
  Sex: Female

DRUGS (2)
  1. FOLIC ACID WITH VITAMINS [Concomitant]
     Route: 048
  2. TRIMETHOPRIM TABLETS 200 MG [Suspect]
     Indication: URINARY TRACT INFECTION
     Dosage: 400 MILLIGRAM DAILY;
     Route: 048
     Dates: start: 20051128, end: 20051130

REACTIONS (4)
  - VAGINAL HAEMORRHAGE [None]
  - ABDOMINAL PAIN [None]
  - ABORTION SPONTANEOUS [None]
  - RASH [None]
